FAERS Safety Report 17043545 (Version 1)
Quarter: 2019Q4

REPORT INFORMATION
  Report Type: Spontaneous
  Country: KR (occurrence: KR)
  Receive Date: 20191115
  Receipt Date: 20191115
  Transmission Date: 20200122
  Serious: Yes (Other)
  Sender: FDA-Public Use
  Company Number: None

PATIENT
  Age: 14 Year
  Sex: Female
  Weight: 45 kg

DRUGS (5)
  1. LEVOCETIRIZIN [Concomitant]
     Active Substance: LEVOCETIRIZINE DIHYDROCHLORIDE
  2. OMEPRAZOLE. [Concomitant]
     Active Substance: OMEPRAZOLE
  3. IBUPROFEN. [Concomitant]
     Active Substance: IBUPROFEN
  4. TAMIFLU [Suspect]
     Active Substance: OSELTAMIVIR PHOSPHATE
     Indication: PNEUMONIA INFLUENZAL
     Dosage: ?          QUANTITY:11 ML;?
     Route: 048
     Dates: start: 20191115, end: 20191115
  5. TRIMEBUTIN [Concomitant]

REACTIONS (5)
  - Psychotic disorder [None]
  - Crying [None]
  - Violence-related symptom [None]
  - Anxiety [None]
  - Hallucination [None]

NARRATIVE: CASE EVENT DATE: 20191115
